FAERS Safety Report 11453631 (Version 1)
Quarter: 2015Q3

REPORT INFORMATION
  Report Type: Spontaneous
  Country: US (occurrence: US)
  Receive Date: 20150831
  Receipt Date: 20150831
  Transmission Date: 20151125
  Serious: No
  Sender: FDA-Public Use
  Company Number: US-ELI_LILLY_AND_COMPANY-US200912005169

PATIENT
  Age: 54 Year
  Sex: Male

DRUGS (1)
  1. CYMBALTA [Suspect]
     Active Substance: DULOXETINE HYDROCHLORIDE
     Indication: MAJOR DEPRESSION
     Dosage: UNK, UNK
     Route: 048

REACTIONS (11)
  - Nervousness [Unknown]
  - Activation syndrome [Unknown]
  - Agitation [Unknown]
  - Headache [Unknown]
  - Suicidal ideation [Unknown]
  - Blood pressure increased [Unknown]
  - Insomnia [Unknown]
  - Hostility [Unknown]
  - Irritability [Unknown]
  - Anxiety [Unknown]
  - Drug ineffective [Unknown]
